FAERS Safety Report 10238387 (Version 2)
Quarter: 2014Q3

REPORT INFORMATION
  Report Type: Report from Study
  Country: AR (occurrence: AR)
  Receive Date: 20140616
  Receipt Date: 20140819
  Transmission Date: 20150326
  Serious: Yes (Other)
  Sender: FDA-Public Use
  Company Number: AR-ABBVIE-14P-007-1245083-00

PATIENT
  Age: 44 Year
  Sex: Female

DRUGS (1)
  1. HUMIRA [Suspect]
     Active Substance: ADALIMUMAB
     Indication: RHEUMATOID ARTHRITIS
     Route: 058
     Dates: start: 20120529

REACTIONS (3)
  - Brain injury [Recovered/Resolved]
  - Cerebral thrombosis [Recovered/Resolved]
  - Convulsion [Not Recovered/Not Resolved]

NARRATIVE: CASE EVENT DATE: 201306
